FAERS Safety Report 15298666 (Version 1)
Quarter: 2018Q3

REPORT INFORMATION
  Report Type: Spontaneous
  Country: US (occurrence: US)
  Receive Date: 20180820
  Receipt Date: 20180820
  Transmission Date: 20181010
  Serious: Yes (Other)
  Sender: FDA-Public Use
  Company Number: US-BEH-2018093953

PATIENT
  Age: 56 Year
  Sex: Female

DRUGS (22)
  1. VITAMIN D                          /00107901/ [Concomitant]
     Active Substance: ERGOCALCIFEROL
  2. MIRALAX [Concomitant]
     Active Substance: POLYETHYLENE GLYCOL 3350
  3. CLONAZEPAM. [Concomitant]
     Active Substance: CLONAZEPAM
  4. DICYCLOMINE HCL [Concomitant]
     Active Substance: DICYCLOMINE HYDROCHLORIDE
  5. MULTIPLE VITAMINS [Concomitant]
     Active Substance: VITAMINS
  6. PROAIR HFA [Concomitant]
     Active Substance: ALBUTEROL SULFATE
  7. SOMA [Concomitant]
     Active Substance: CARISOPRODOL
  8. TRAMADOL HCL [Concomitant]
     Active Substance: TRAMADOL HYDROCHLORIDE
  9. HYDROCODONE BITARTRATE AND ACETAMINOPHEN [Concomitant]
     Active Substance: ACETAMINOPHEN\HYDROCODONE BITARTRATE
  10. MELOXICAM. [Concomitant]
     Active Substance: MELOXICAM
  11. EPIPEN [Concomitant]
     Active Substance: EPINEPHRINE
  12. IMURAN [Concomitant]
     Active Substance: AZATHIOPRINE
  13. IRON [Concomitant]
     Active Substance: IRON
  14. PREDNISONE. [Concomitant]
     Active Substance: PREDNISONE
  15. RANITIDINE HCL [Concomitant]
     Active Substance: RANITIDINE HYDROCHLORIDE
  16. PRIVIGEN [Suspect]
     Active Substance: HUMAN IMMUNOGLOBULIN G
     Indication: MYASTHENIA GRAVIS
     Dosage: 20 G,ONCE FOR 3 DAYS
     Route: 042
     Dates: start: 201708
  17. PRIVIGEN [Suspect]
     Active Substance: HUMAN IMMUNOGLOBULIN G
     Dosage: UNK
     Route: 042
  18. HYDROCHLOROTHIAZIDE. [Concomitant]
     Active Substance: HYDROCHLOROTHIAZIDE
  19. NEXPLANON [Concomitant]
     Active Substance: ETONOGESTREL
  20. VITAMIN B12 [Concomitant]
     Active Substance: CYANOCOBALAMIN
  21. GABAPENTIN. [Concomitant]
     Active Substance: GABAPENTIN
  22. PROTONIX [Concomitant]
     Active Substance: PANTOPRAZOLE SODIUM

REACTIONS (9)
  - Pain in extremity [Recovered/Resolved]
  - Restless legs syndrome [Recovered/Resolved]
  - Fall [Recovered/Resolved]
  - Visual impairment [Recovered/Resolved]
  - Nausea [Recovered/Resolved]
  - Cataract [Recovered/Resolved]
  - Retching [Recovered/Resolved]
  - Fatigue [Recovered/Resolved]
  - Diarrhoea [Recovered/Resolved]

NARRATIVE: CASE EVENT DATE: 20180808
